FAERS Safety Report 18607726 (Version 1)
Quarter: 2020Q4

REPORT INFORMATION
  Report Type: Spontaneous
  Country: GB (occurrence: GB)
  Receive Date: 20201211
  Receipt Date: 20201211
  Transmission Date: 20210114
  Serious: Yes (Other)
  Sender: FDA-Public Use
  Company Number: GB-BAUSCH-BL-2020-035313

PATIENT
  Age: 36 Year
  Sex: Female
  Weight: 80.05 kg

DRUGS (11)
  1. GABAPENTIN. [Suspect]
     Active Substance: GABAPENTIN
     Indication: PAIN OF SKIN
  2. DERMOVATE [Suspect]
     Active Substance: CLOBETASOL
     Indication: GRAFT VERSUS HOST DISEASE
     Dosage: ONGOING, PRN (WHEN NECESSARY).
     Route: 061
     Dates: start: 20200701
  3. ADCAL D3 [Suspect]
     Active Substance: CALCIUM CARBONATE\CHOLECALCIFEROL
     Indication: HYPOCALCAEMIA
     Dosage: ONGOING (2 (UNIT UNSPECIFIED))
     Route: 048
     Dates: start: 20200820
  4. PENTAMIDINE ISETIONATE [Suspect]
     Active Substance: PENTAMIDINE ISETHIONATE
     Indication: PROPHYLAXIS
     Dosage: PREVIOUS DOSE.
     Route: 042
     Dates: start: 20200624
  5. GABAPENTIN. [Suspect]
     Active Substance: GABAPENTIN
     Indication: NEUROPATHY PERIPHERAL
     Dosage: ONGOING.
     Route: 048
     Dates: start: 20200729
  6. WATER FOR INJECTION [Suspect]
     Active Substance: WATER
     Indication: MEDICATION DILUTION
     Route: 042
     Dates: start: 20201105, end: 20201105
  7. ERYTHROMYCIN. [Suspect]
     Active Substance: ERYTHROMYCIN
     Indication: HYPOSPLENISM
     Dosage: ONGOING.
     Route: 048
     Dates: start: 20200621
  8. PENTAMIDINE ISETIONATE [Suspect]
     Active Substance: PENTAMIDINE ISETHIONATE
     Indication: NEUTROPENIA
     Dosage: PREVIOUS DOSE.
     Route: 042
     Dates: start: 20200416
  9. SODIUM CHLORIDE. [Suspect]
     Active Substance: SODIUM CHLORIDE
     Indication: MEDICATION DILUTION
     Route: 042
     Dates: start: 20201105, end: 20201105
  10. ACYCLOVIR. [Suspect]
     Active Substance: ACYCLOVIR
     Indication: PROPHYLAXIS
     Dosage: ONGOING.
     Route: 048
     Dates: start: 20191126
  11. PENTAMIDINE ISETIONATE [Suspect]
     Active Substance: PENTAMIDINE ISETHIONATE
     Route: 042
     Dates: start: 20201105, end: 20201105

REACTIONS (1)
  - Injection site erythema [Recovered/Resolved]

NARRATIVE: CASE EVENT DATE: 20201105
